FAERS Safety Report 9213272 (Version 1)
Quarter: 2013Q1

REPORT INFORMATION
  Report Type: Spontaneous
  Country: US (occurrence: None)
  Receive Date: 20120820
  Receipt Date: 20120820
  Transmission Date: 20140127
  Serious: No
  Sender: FDA-Public Use
  Company Number: 1000031240

PATIENT
  Sex: Female

DRUGS (1)
  1. VIIBRYD [Suspect]
     Indication: POSTPARTUM DEPRESSION
     Dosage: 10 MG (10 MG, 1 IN 1 D)

REACTIONS (3)
  - Muscle twitching [None]
  - Tremor [None]
  - Paraesthesia [None]
